FAERS Safety Report 7426068-6 (Version None)
Quarter: 2011Q2

REPORT INFORMATION
  Report Type: 
  Country: None (occurrence: None)
  Receive Date: 20110420
  Receipt Date: 20110411
  Transmission Date: 20111010
  Serious: Yes (Other)
  Sender: FDA-Public Use
  Company Number: CN-JNJFOC-20110404863

PATIENT
  Age: 18 Year
  Sex: Female

DRUGS (1)
  1. RISPERDAL [Suspect]
     Indication: HALLUCINATION
     Dosage: STRENTH 30 ML SOLUTION
     Route: 048

REACTIONS (3)
  - SOMNOLENCE [None]
  - ATTENTION DEFICIT/HYPERACTIVITY DISORDER [None]
  - ASTHENIA [None]
